FAERS Safety Report 6964493-8 (Version None)
Quarter: 2010Q3

REPORT INFORMATION
  Report Type: 
  Country: None (occurrence: None)
  Receive Date: 20100903
  Receipt Date: 20100824
  Transmission Date: 20110219
  Serious: Yes (Death)
  Sender: FDA-Public Use
  Company Number: JP-PFIZER INC-2010097684

PATIENT
  Age: 64 Year
  Sex: Male

DRUGS (2)
  1. ZYVOX [Suspect]
     Indication: STAPHYLOCOCCAL INFECTION
     Dosage: 1200 MG, 1X/DAY
     Route: 041
     Dates: start: 20100801
  2. INSULIN [Concomitant]
     Indication: DIABETES MELLITUS
     Dosage: UNK
     Route: 058

REACTIONS (4)
  - HAEMATURIA [None]
  - MYOGLOBINURIA [None]
  - RENAL FAILURE [None]
  - RHABDOMYOLYSIS [None]
